FAERS Safety Report 5746927-X (Version None)
Quarter: 2008Q2

REPORT INFORMATION
  Report Type: 
  Country: None (occurrence: None)
  Receive Date: 20080522
  Receipt Date: 20080513
  Transmission Date: 20081010
  Serious: Yes (Hospitalization)
  Sender: FDA-Public Use
  Company Number: SE-PFIZER INC-2008041298

PATIENT
  Sex: Female

DRUGS (5)
  1. CLINDAMYCIN HCL [Suspect]
     Indication: STAPHYLOCOCCAL INFECTION
     Route: 048
     Dates: start: 20080101, end: 20080101
  2. ERYTHROMYCIN [Suspect]
     Indication: STAPHYLOCOCCAL INFECTION
     Route: 048
     Dates: start: 20080201, end: 20080213
  3. ZOPICLONE [Concomitant]
  4. ACETAMINOPHEN [Concomitant]
     Route: 048
  5. PREDNISOLONE [Concomitant]
     Route: 048

REACTIONS (3)
  - OEDEMA [None]
  - PRURITUS [None]
  - RASH [None]
